FAERS Safety Report 9770695 (Version 5)
Quarter: 2014Q1

REPORT INFORMATION
  Report Type: Spontaneous
  Country: JP (occurrence: JP)
  Receive Date: 20131218
  Receipt Date: 20140313
  Transmission Date: 20141002
  Serious: Yes (Other)
  Sender: FDA-Public Use
  Company Number: JP-GLAXOSMITHKLINE-B0953446A

PATIENT
  Sex: Male

DRUGS (5)
  1. LAMICTAL [Suspect]
     Indication: BIPOLAR DISORDER
     Route: 048
     Dates: start: 2013, end: 201311
  2. SOLANAX [Concomitant]
     Route: 048
  3. LOXONIN [Concomitant]
     Route: 048
  4. DIOVAN [Concomitant]
     Route: 048
  5. SODIUM VALPROATE [Concomitant]
     Route: 048

REACTIONS (2)
  - Hepatitis [Recovered/Resolved]
  - Hepatic function abnormal [Recovered/Resolved]
